FAERS Safety Report 7325615-2 (Version None)
Quarter: 2011Q1

REPORT INFORMATION
  Report Type: 
  Country: None (occurrence: None)
  Receive Date: 20110302
  Receipt Date: 20110225
  Transmission Date: 20110831
  Serious: Yes (Other)
  Sender: FDA-Public Use
  Company Number: IE-PFIZER INC-2011043890

PATIENT
  Age: 59 Year
  Sex: Female

DRUGS (4)
  1. LIPITOR [Suspect]
     Indication: HYPERLIPIDAEMIA
     Dosage: 40 MG, 1X/DAY
     Route: 048
     Dates: start: 20110127, end: 20110204
  2. NU-SEALS [Concomitant]
     Dosage: 75 MG, 1X/DAY
     Dates: start: 20110127
  3. AMLODIPINE [Concomitant]
  4. COVERSYL [Concomitant]
     Indication: HYPERTENSION
     Dosage: 10 MG, 1X/DAY
     Dates: start: 20110201

REACTIONS (1)
  - RASH PRURITIC [None]
